FAERS Safety Report 19162167 (Version 3)
Quarter: 2021Q3

REPORT INFORMATION
  Report Type: Spontaneous
  Country: JP (occurrence: JP)
  Receive Date: 20210421
  Receipt Date: 20210803
  Transmission Date: 20211014
  Serious: Yes (Life-Threatening, Hospitalization)
  Sender: FDA-Public Use
  Company Number: JP-TAIHO ONCOLOGY  INC-JPTT210133

PATIENT
  Age: 83 Year
  Sex: Male
  Weight: 60.6 kg

DRUGS (8)
  1. LONSURF [Suspect]
     Active Substance: TIPIRACIL HYDROCHLORIDE\TRIFLURIDINE
     Dosage: DETAILS NOT REPORTED
     Route: 048
     Dates: start: 20210415, end: 20210418
  2. MEROPEN [Concomitant]
     Active Substance: MEROPENEM
     Dosage: DETAILS NOT REPORTED
     Route: 041
     Dates: start: 20210324
  3. RECOMODULIN [Concomitant]
     Active Substance: THROMBOMODULIN ALFA
     Indication: DISSEMINATED INTRAVASCULAR COAGULATION
     Dosage: DETAILS NOT REPORTED
     Route: 041
     Dates: start: 20210324
  4. MAXIPIME [Concomitant]
     Active Substance: CEFEPIME HYDROCHLORIDE
     Dosage: DETAILS NOT REPORTED
     Route: 041
     Dates: start: 20210324
  5. TARGOCID [Concomitant]
     Active Substance: TEICOPLANIN
     Dosage: DETAILS NOT REPORTED
     Route: 041
     Dates: start: 20210324
  6. GRAN [Concomitant]
     Active Substance: FILGRASTIM
     Dosage: DETAILS NOT REPORTED
     Route: 058
     Dates: start: 20210324
  7. MICAFUNGIN SODIUM [Concomitant]
     Active Substance: MICAFUNGIN SODIUM
     Dosage: DETAILS NOT REPORTED
     Route: 041
     Dates: start: 20210324
  8. LONSURF [Suspect]
     Active Substance: TIPIRACIL HYDROCHLORIDE\TRIFLURIDINE
     Indication: COLORECTAL CANCER METASTATIC
     Dosage: DETAILS NOT REPORTED, 10 DOSING DAYS
     Route: 048
     Dates: start: 20210311, end: 20210324

REACTIONS (6)
  - Febrile neutropenia [Recovering/Resolving]
  - Pyrexia [Recovering/Resolving]
  - Pancytopenia [Recovering/Resolving]
  - Disseminated intravascular coagulation [Recovering/Resolving]
  - Sepsis [Recovering/Resolving]
  - Urinary tract infection [Recovering/Resolving]

NARRATIVE: CASE EVENT DATE: 20210324
